FAERS Safety Report 18530245 (Version 2)
Quarter: 2020Q4

REPORT INFORMATION
  Report Type: Spontaneous
  Country: AU (occurrence: AU)
  Receive Date: 20201121
  Receipt Date: 20201210
  Transmission Date: 20210114
  Serious: Yes (Hospitalization)
  Sender: FDA-Public Use
  Company Number: AU-ACCORD-207402

PATIENT
  Age: 53 Year
  Sex: Male
  Weight: 76 kg

DRUGS (6)
  1. CAPECITABINE. [Concomitant]
     Active Substance: CAPECITABINE
     Indication: RECTAL CANCER
     Dosage: 2000 MG TWICE A DAY
     Dates: start: 20200924
  2. DEXAMETHASONE. [Concomitant]
     Active Substance: DEXAMETHASONE
     Dosage: ONCE A DAY TO PREVENT CINU
     Dates: start: 20200924
  3. METOCLOPRAMIDE. [Concomitant]
     Active Substance: METOCLOPRAMIDE
     Dosage: DOSE: 10 MG THREE TIMES A DAY REQUIRED FOR CINU
     Dates: start: 20200924
  4. LOPERAMIDE [Concomitant]
     Active Substance: LOPERAMIDE
     Indication: DIARRHOEA
     Dosage: 2 MG WHEN REQUIRED
     Dates: start: 20200924
  5. PANTOPRAZOLE [Concomitant]
     Active Substance: PANTOPRAZOLE
     Indication: GASTROOESOPHAGEAL REFLUX DISEASE
     Dosage: 40MG ONCE A DAY
  6. OXALIPLATIN ACCORD [Suspect]
     Active Substance: OXALIPLATIN
     Indication: RECTAL CANCER
     Dosage: STRENGTH: 100 MG/20 ML, EVERY 3 WEEKS
     Route: 042
     Dates: start: 20201015

REACTIONS (6)
  - Oropharyngeal pain [Recovered/Resolved]
  - Pain in extremity [Recovered/Resolved]
  - Tetany [Recovered/Resolved]
  - Eyelid ptosis [Recovered/Resolved]
  - Vision blurred [Recovered/Resolved]
  - Dysaesthesia pharynx [Recovered/Resolved]

NARRATIVE: CASE EVENT DATE: 20201015
